FAERS Safety Report 16191794 (Version 2)
Quarter: 2020Q3

REPORT INFORMATION
  Report Type: Report from Study
  Country: FR (occurrence: FR)
  Receive Date: 20190412
  Receipt Date: 20190510
  Transmission Date: 20201105
  Serious: Yes (Hospitalization)
  Sender: FDA-Public Use
  Company Number: FR-ASTRAZENECA-2019SE53149

PATIENT
  Age: 955 Month
  Sex: Male

DRUGS (6)
  1. TAREG [Concomitant]
     Active Substance: VALSARTAN
     Dosage: 80 MG
  2. MEDI4736 [Suspect]
     Active Substance: DURVALUMAB
     Indication: BILE DUCT CANCER
     Route: 042
     Dates: start: 20190307, end: 20190307
  3. PACLITAXEL. [Suspect]
     Active Substance: PACLITAXEL
     Indication: BILE DUCT CANCER
     Route: 065
     Dates: start: 20190307, end: 20190307
  4. OXYNORM [Concomitant]
     Active Substance: OXYCODONE HYDROCHLORIDE
     Dosage: 5 MG
  5. TREMELIMUMAB. [Suspect]
     Active Substance: TREMELIMUMAB
     Indication: BILE DUCT CANCER
     Route: 042
     Dates: start: 20190307, end: 20190403
  6. OXYCONTIN [Concomitant]
     Active Substance: OXYCODONE HYDROCHLORIDE
     Dosage: 5 MG

REACTIONS (1)
  - Infusion related reaction [Recovered/Resolved]

NARRATIVE: CASE EVENT DATE: 20190403
